FAERS Safety Report 17026978 (Version 1)
Quarter: 2019Q4

REPORT INFORMATION
  Report Type: Spontaneous
  Country: US (occurrence: US)
  Receive Date: 20191010
  Receipt Date: 20191010
  Transmission Date: 20200122
  Serious: No
  Sender: FDA-Public Use
  Company Number: None

PATIENT
  Sex: Female

DRUGS (8)
  1. LOSARTAN. [Concomitant]
     Active Substance: LOSARTAN
  2. TEMAZEPAM. [Concomitant]
     Active Substance: TEMAZEPAM
  3. MULTIVIT [Concomitant]
     Active Substance: VITAMINS
  4. DULOXETINE. [Concomitant]
     Active Substance: DULOXETINE
  5. GLUCOSAMINE [Concomitant]
     Active Substance: GLUCOSAMINE
  6. MIRTAZAPINE. [Concomitant]
     Active Substance: MIRTAZAPINE
  7. CHONDROITIN [Concomitant]
     Active Substance: CHONDROITIN
  8. OCALIVA [Suspect]
     Active Substance: OBETICHOLIC ACID
     Indication: PRIMARY BILIARY CHOLANGITIS
     Route: 048
     Dates: start: 20170311

REACTIONS (1)
  - Fatigue [None]
